FAERS Safety Report 6512215-7 (Version None)
Quarter: 2009Q4

REPORT INFORMATION
  Report Type: 
  Country: None (occurrence: None)
  Receive Date: 20091222
  Receipt Date: 20090717
  Transmission Date: 20100525
  Serious: No
  Sender: FDA-Public Use
  Company Number: US-ASTRAZENECA-2009UW20343

PATIENT
  Age: 28968 Day
  Sex: Female
  Weight: 59.9 kg

DRUGS (5)
  1. CRESTOR [Suspect]
     Route: 048
     Dates: start: 20090630
  2. CRESTOR [Suspect]
     Route: 048
     Dates: start: 20090101, end: 20090101
  3. CRESTOR [Suspect]
     Route: 048
     Dates: start: 20090417, end: 20090101
  4. VITAMINS [Concomitant]
  5. ACTONEL [Concomitant]
     Indication: BONE DENSITY DECREASED

REACTIONS (4)
  - HEADACHE [None]
  - MUSCULAR WEAKNESS [None]
  - NAUSEA [None]
  - PAIN IN EXTREMITY [None]
